FAERS Safety Report 25391361 (Version 1)
Quarter: 2025Q2

REPORT INFORMATION
  Report Type: Spontaneous
  Country: US (occurrence: US)
  Receive Date: 20250603
  Receipt Date: 20250603
  Transmission Date: 20250716
  Serious: No
  Sender: EAGLE
  Company Number: US-EAGLE PHARMACEUTICALS, INC.-US-2024EAG000129

PATIENT

DRUGS (1)
  1. BELRAPZO [Suspect]
     Active Substance: BENDAMUSTINE HYDROCHLORIDE
     Indication: Product used for unknown indication
     Route: 042

REACTIONS (2)
  - Tissue injury [Unknown]
  - Administration site extravasation [Unknown]
